FAERS Safety Report 19210439 (Version 1)
Quarter: 2021Q2

REPORT INFORMATION
  Report Type: Spontaneous
  Country: US (occurrence: US)
  Receive Date: 20210503
  Receipt Date: 20210503
  Transmission Date: 20210717
  Serious: Yes (Other)
  Sender: FDA-Public Use
  Company Number: None

PATIENT
  Age: 51 Year
  Sex: Female
  Weight: 93.4 kg

DRUGS (1)
  1. BAMLANIVIMAB?ETESEVIMAB [Suspect]
     Active Substance: BAMLANIVIMAB\ETESEVIMAB
     Indication: COVID-19
     Dosage: ?          OTHER FREQUENCY:ONCE;?
     Route: 042
     Dates: start: 20210428, end: 20210428

REACTIONS (13)
  - Nasal congestion [None]
  - Myalgia [None]
  - Fluid intake reduced [None]
  - Respiratory tract congestion [None]
  - Rhinorrhoea [None]
  - Decreased appetite [None]
  - Constipation [None]
  - Nausea [None]
  - Condition aggravated [None]
  - Dyspnoea [None]
  - Hypophagia [None]
  - Fatigue [None]
  - Productive cough [None]

NARRATIVE: CASE EVENT DATE: 20210430
